FAERS Safety Report 7568366-1 (Version None)
Quarter: 2011Q2

REPORT INFORMATION
  Report Type: 
  Country: None (occurrence: None)
  Receive Date: 20110623
  Receipt Date: 20110617
  Transmission Date: 20111010
  Serious: Yes (Other)
  Sender: FDA-Public Use
  Company Number: A0932502A

PATIENT
  Age: 50 Year
  Sex: Male
  Weight: 75 kg

DRUGS (13)
  1. PRENATAL VITAMINS [Concomitant]
  2. DIOVAN [Concomitant]
  3. FISH OIL [Concomitant]
  4. DILTIAZEM [Concomitant]
  5. COMBIVIR [Suspect]
     Indication: HIV INFECTION
     Dosage: 1TAB TWICE PER DAY
     Route: 065
     Dates: start: 19990101
  6. TAMSULOSIN HCL [Concomitant]
  7. ZOLPIDEM [Concomitant]
  8. INDOMETHACIN [Concomitant]
  9. VIRACEPT [Suspect]
     Indication: HIV INFECTION
     Dosage: 625MG FOUR TIMES PER DAY
     Route: 065
     Dates: start: 19990101
  10. CALCIUM CARBONATE + CHOLECALCIFEROL [Concomitant]
  11. AMITRIPTYLINE HCL [Concomitant]
  12. VITAMIN D [Concomitant]
  13. ACETYLSALICYLIC ACID [Concomitant]

REACTIONS (2)
  - HEPATIC ENZYME INCREASED [None]
  - GASTROOESOPHAGEAL REFLUX DISEASE [None]
